FAERS Safety Report 9465707 (Version 2)
Quarter: 2013Q4

REPORT INFORMATION
  Report Type: Report from Study
  Country: US (occurrence: US)
  Receive Date: 20130820
  Receipt Date: 20131009
  Transmission Date: 20140711
  Serious: Yes (Other)
  Sender: FDA-Public Use
  Company Number: US-JNJFOC-20130806246

PATIENT
  Sex: Male

DRUGS (7)
  1. REMICADE [Suspect]
     Indication: CROHN^S DISEASE
     Route: 042
  2. REMICADE [Suspect]
     Indication: CROHN^S DISEASE
     Route: 042
     Dates: end: 2013
  3. ZEGERID [Concomitant]
     Indication: DYSPEPSIA
     Route: 065
  4. PREDNISONE [Concomitant]
     Indication: CROHN^S DISEASE
     Route: 065
  5. COUMADIN [Concomitant]
     Indication: THROMBOSIS
     Route: 065
  6. IMURAN [Concomitant]
     Indication: CROHN^S DISEASE
     Route: 065
  7. ONDANSETRON [Concomitant]
     Indication: NAUSEA
     Route: 065

REACTIONS (6)
  - Dyspnoea [Recovering/Resolving]
  - Chest pain [Recovering/Resolving]
  - Swelling [Recovering/Resolving]
  - Abnormal weight gain [Recovering/Resolving]
  - Arthralgia [Recovering/Resolving]
  - Headache [Recovering/Resolving]
